FAERS Safety Report 4701150-2 (Version None)
Quarter: 2005Q2

REPORT INFORMATION
  Report Type: 
  Country: None (occurrence: None)
  Receive Date: 20050628
  Receipt Date: 20050609
  Transmission Date: 20051028
  Serious: Yes (Hospitalization)
  Sender: FDA-Public Use
  Company Number: FR-GLAXOSMITHKLINE-B0384526A

PATIENT
  Age: 79 Year
  Sex: Male

DRUGS (4)
  1. AUGMENTIN '125' [Suspect]
     Dosage: 1UNIT THREE TIMES PER DAY
     Route: 042
     Dates: start: 20050430, end: 20050513
  2. BIONOLYTE [Concomitant]
     Dosage: 1.5L PER DAY
     Route: 042
     Dates: start: 20050502, end: 20050521
  3. LOVENOX [Concomitant]
     Dosage: .4ML PER DAY
     Route: 058
     Dates: start: 20050503, end: 20050508
  4. CLONAZEPAM [Concomitant]
     Indication: CONVULSION
     Dosage: 1AMP AS REQUIRED
     Route: 042
     Dates: start: 20050501, end: 20050517

REACTIONS (3)
  - HAEMATURIA [None]
  - HEMIPARESIS [None]
  - THROMBOCYTOPENIA [None]
